FAERS Safety Report 22888667 (Version 3)
Quarter: 2024Q1

REPORT INFORMATION
  Report Type: Spontaneous
  Country: US (occurrence: US)
  Receive Date: 20230831
  Receipt Date: 20240130
  Transmission Date: 20240410
  Serious: Yes (Other)
  Sender: FDA-Public Use
  Company Number: US-PFIZER INC-202300286351

PATIENT
  Age: 84 Year
  Sex: Male
  Weight: 97.98 kg

DRUGS (1)
  1. VYNDAMAX [Suspect]
     Active Substance: TAFAMIDIS
     Indication: Cardiac amyloidosis
     Dosage: 61 MG, 1X/DAY
     Dates: start: 20220920

REACTIONS (3)
  - Dyspnoea [Unknown]
  - Pain [Unknown]
  - Body height decreased [Unknown]
